FAERS Safety Report 6939961-5 (Version None)
Quarter: 2010Q3

REPORT INFORMATION
  Report Type: 
  Country: None (occurrence: None)
  Receive Date: 20100825
  Receipt Date: 20100816
  Transmission Date: 20110219
  Serious: Yes (Other)
  Sender: FDA-Public Use
  Company Number: GB-PFIZER INC-2010102466

PATIENT
  Age: 68 Year
  Sex: Female

DRUGS (2)
  1. CELEBREX [Suspect]
     Indication: ARTHRITIS
     Dosage: 400 MG, 1X/DAY
  2. CELEBREX [Suspect]
     Dosage: 100MG IN AM + 200MG IN PM

REACTIONS (2)
  - OVARIAN CANCER [None]
  - TUMOUR MARKER INCREASED [None]
